FAERS Safety Report 11575261 (Version 1)
Quarter: 2015Q3

REPORT INFORMATION
  Report Type: Spontaneous
  Country: US (occurrence: US)
  Receive Date: 20150930
  Receipt Date: 20150930
  Transmission Date: 20151125
  Serious: No
  Sender: FDA-Public Use
  Company Number: US-MERZ NORTH AMERICA, INC.-15MRZ-00530

PATIENT
  Age: 68 Year
  Sex: Female

DRUGS (4)
  1. BELOTERO [Suspect]
     Active Substance: HYALURONIC ACID
     Dosage: 1 CC IN TEAR TROUGH
     Dates: start: 20150903, end: 20150903
  2. RADIESSE [Concomitant]
     Active Substance: TRIBASIC CALCIUM PHOSPHATE
     Dates: start: 20150903, end: 20150903
  3. RESTYLANE [Concomitant]
     Active Substance: HYALURONIC ACID
     Dates: start: 20150903, end: 20150903
  4. XEOMIN [Suspect]
     Active Substance: INCOBOTULINUMTOXINA
     Route: 030
     Dates: start: 20150903, end: 20150903

REACTIONS (2)
  - Pain [Recovering/Resolving]
  - Face oedema [Recovering/Resolving]

NARRATIVE: CASE EVENT DATE: 20150909
